FAERS Safety Report 25503992 (Version 1)
Quarter: 2025Q3

REPORT INFORMATION
  Report Type: Report from Study
  Country: US (occurrence: US)
  Receive Date: 20250702
  Receipt Date: 20250702
  Transmission Date: 20251021
  Serious: Yes (Other)
  Sender: MYLAN
  Company Number: US-MYLANLABS-2025M1055043

PATIENT
  Age: 24 Year
  Sex: Male

DRUGS (2)
  1. ETOPOSIDE [Suspect]
     Active Substance: ETOPOSIDE
     Indication: Medulloblastoma
  2. CISPLATIN [Suspect]
     Active Substance: CISPLATIN
     Indication: Medulloblastoma

REACTIONS (2)
  - Haematotoxicity [Recovered/Resolved]
  - Off label use [Unknown]
